FAERS Safety Report 6141038-6 (Version None)
Quarter: 2009Q2

REPORT INFORMATION
  Report Type: 
  Country: None (occurrence: None)
  Receive Date: 20090402
  Receipt Date: 20090330
  Transmission Date: 20091009
  Serious: Yes (Other)
  Sender: FDA-Public Use
  Company Number: CA-ROXANE LABORATORIES, INC.-2009-RO-00307RO

PATIENT
  Age: 43 Year
  Sex: Male

DRUGS (2)
  1. MORPHINE [Suspect]
     Indication: ANAESTHESIA
  2. FENTANYL-25 [Suspect]
     Indication: ANAESTHESIA

REACTIONS (3)
  - AGGRESSION [None]
  - AGITATION [None]
  - HUMERUS FRACTURE [None]
